FAERS Safety Report 6355447-3 (Version None)
Quarter: 2009Q3

REPORT INFORMATION
  Report Type: 
  Country: None (occurrence: None)
  Receive Date: 20090914
  Receipt Date: 20090908
  Transmission Date: 20100115
  Serious: Yes (Hospitalization)
  Sender: FDA-Public Use
  Company Number: PHHO2009US11178

PATIENT
  Sex: Female
  Weight: 61 kg

DRUGS (4)
  1. RAD 666 RAD+TAB [Suspect]
     Indication: RENAL TRANSPLANT
     Dosage: 1.0 MG, BID
     Route: 048
     Dates: start: 20061024
  2. NEORAL [Concomitant]
     Indication: RENAL TRANSPLANT
     Dosage: 50 MG, BID
     Route: 048
     Dates: start: 20061024
  3. PREDNISONE [Concomitant]
     Indication: RENAL TRANSPLANT
     Dosage: 5 MG / DAY
     Route: 048
     Dates: start: 20061026
  4. REMICADE [Concomitant]
     Indication: RHEUMATOID ARTHRITIS
     Dosage: 300 MG / 6 WEEKS
     Route: 042
     Dates: start: 20010101

REACTIONS (8)
  - ARTERIAL HAEMORRHAGE [None]
  - ARTERIAL REPAIR [None]
  - BREAST DISCOLOURATION [None]
  - BREAST PAIN [None]
  - BREAST SWELLING [None]
  - HAEMATOMA [None]
  - HAEMATOMA EVACUATION [None]
  - POST PROCEDURAL HAEMORRHAGE [None]
